FAERS Safety Report 9929447 (Version 2)
Quarter: 2014Q1

REPORT INFORMATION
  Report Type: Spontaneous
  Country: US (occurrence: US)
  Receive Date: 20140227
  Receipt Date: 20140313
  Transmission Date: 20141002
  Serious: Yes (Other)
  Sender: FDA-Public Use
  Company Number: GXBR2014US000720

PATIENT
  Age: 79 Year
  Sex: Male
  Weight: 126.8 kg

DRUGS (21)
  1. GLIPIZIDE TABLETS USP [Suspect]
     Indication: DIABETES MELLITUS
     Dosage: 5 MG, BID
     Route: 048
     Dates: start: 201311, end: 201402
  2. GLIPIZIDE TABLETS USP [Suspect]
     Dosage: 5 MG QAM AND 10MG QPM
     Route: 048
     Dates: start: 20140215
  3. GLIPIZIDE TABLETS USP [Suspect]
     Dosage: 10 MG, BID
     Route: 048
     Dates: start: 20140210
  4. METFORMIN [Suspect]
     Indication: DIABETES MELLITUS
     Dosage: 850 MG, BID
     Route: 048
  5. TAMSULOSIN [Concomitant]
     Indication: PROSTATOMEGALY
     Dosage: 0.4 MG, QD2SDO
     Route: 048
  6. SIMVASTATIN [Concomitant]
     Indication: HYPERCHOLESTEROLAEMIA
     Dosage: 20 MG, QHS
     Route: 048
  7. LOSARTAN [Concomitant]
     Indication: HYPERTENSION
     Dosage: 25 MG, BID
     Route: 048
  8. ASPIRIN [Concomitant]
     Indication: CARDIOVASCULAR EVENT PROPHYLAXIS
     Dosage: 81 MG, QD
     Route: 048
     Dates: end: 20140219
  9. VITAMIN B3 [Concomitant]
     Indication: SUPPLEMENTATION THERAPY
     Dosage: UNK DF, UNK
  10. VITAMIN E [Concomitant]
     Indication: SUPPLEMENTATION THERAPY
     Dosage: UNK DF, UNK
  11. FERROUS SULFATE [Concomitant]
     Indication: SUPPLEMENTATION THERAPY
     Dosage: 325 MG, TID
     Route: 048
  12. MULTIVIT//VITAMINS NOS [Concomitant]
     Indication: SUPPLEMENTATION THERAPY
     Dosage: UNK DF, UNK
  13. CLOPIDOGREL BISULFATE [Concomitant]
     Indication: ANTICOAGULANT THERAPY
     Dosage: 75 MG, QD
     Route: 048
  14. ACARBOSE [Concomitant]
     Indication: DIABETES MELLITUS
     Dosage: 25 MG, BID
     Route: 048
  15. CYCLOSPORINE [Concomitant]
     Indication: DRY EYE
     Dosage: 1 GTT, Q12H
     Route: 047
  16. NAPROXEN [Concomitant]
     Indication: PAIN
     Dosage: 500 MG, BID
     Route: 048
  17. HYALURONATE NA [Concomitant]
     Indication: ARTHRITIS
     Dosage: 20 MG, QW
     Route: 014
  18. DOCUSATE SODIUM [Concomitant]
     Indication: FAECES HARD
     Dosage: 100 MG, BID PRN
     Route: 048
  19. FINASTERIDE [Concomitant]
     Indication: BENIGN PROSTATIC HYPERPLASIA
     Dosage: 5 MG, QD
     Route: 048
  20. SENNOSIDE [Concomitant]
     Dosage: 8.6 MG, QHS PRN
     Route: 048
  21. CHOLECALCIFEROL [Concomitant]
     Dosage: 1000 U, BID

REACTIONS (4)
  - Transient ischaemic attack [Recovered/Resolved]
  - Dysarthria [Recovered/Resolved]
  - Incoherent [Recovered/Resolved]
  - Aphasia [Recovered/Resolved]
